FAERS Safety Report 6691618-4 (Version None)
Quarter: 2010Q2

REPORT INFORMATION
  Report Type: 
  Country: None (occurrence: None)
  Receive Date: 20100422
  Receipt Date: 20090226
  Transmission Date: 20101027
  Serious: No
  Sender: FDA-Public Use
  Company Number: US-ASTRAZENECA-2009UW05289

PATIENT
  Age: 79 Year
  Sex: Female

DRUGS (1)
  1. METOPROLOL SUCCINATE [Suspect]
     Dosage: UNKNOWN
     Route: 048

REACTIONS (2)
  - HYPERSENSITIVITY [None]
  - PALPITATIONS [None]
